FAERS Safety Report 15434516 (Version 1)
Quarter: 2018Q3

REPORT INFORMATION
  Report Type: Other
  Country: ES (occurrence: ES)
  Receive Date: 20180927
  Receipt Date: 20180927
  Transmission Date: 20181010
  Serious: Yes (Hospitalization)
  Sender: FDA-Public Use
  Company Number: ES-APOTEX-2018AP021227

PATIENT
  Age: 78 Year
  Sex: Male

DRUGS (4)
  1. CEFTAZIDIME. [Suspect]
     Active Substance: CEFTAZIDIME
     Indication: PRODUCT USED FOR UNKNOWN INDICATION
     Dosage: 2 G, TID, 2 G PER 8 HOURS
     Route: 042
  2. CEFDITOREN [Suspect]
     Active Substance: CEFDITOREN
     Indication: ESCHERICHIA INFECTION
     Dosage: 400 MG, BID, 400MG/12H
     Route: 048
  3. OXYGEN. [Concomitant]
     Active Substance: OXYGEN
     Indication: PRODUCT USED FOR UNKNOWN INDICATION
     Dosage: UNK
     Route: 065
  4. LEFLUNOMIDE. [Suspect]
     Active Substance: LEFLUNOMIDE
     Indication: RHEUMATOID ARTHRITIS
     Dosage: UNK
     Route: 065

REACTIONS (2)
  - Bacterial infection [Recovering/Resolving]
  - Chronic obstructive pulmonary disease [Recovering/Resolving]
